FAERS Safety Report 16072736 (Version 1)
Quarter: 2019Q1

REPORT INFORMATION
  Report Type: Report from Study
  Country: DE (occurrence: DE)
  Receive Date: 20190314
  Receipt Date: 20190314
  Transmission Date: 20190418
  Serious: Yes (Other)
  Sender: FDA-Public Use
  Company Number: DE-PFIZER INC-2019108580

PATIENT
  Age: 74 Year
  Sex: Female
  Weight: 86 kg

DRUGS (13)
  1. RANITIC [Concomitant]
     Active Substance: RANITIDINE HYDROCHLORIDE
     Indication: GASTROINTESTINAL DISORDER PROPHYLAXIS
     Route: 042
     Dates: start: 20120524, end: 20121001
  2. FENISTIL [Concomitant]
     Active Substance: DIMETHINDENE
     Dosage: BEFORE CHEMO
     Route: 042
     Dates: start: 20120524, end: 20121001
  3. DEXAMETHASON [DEXAMETHASONE] [Concomitant]
     Active Substance: DEXAMETHASONE
     Dosage: BEFORE CHEMO
     Route: 042
     Dates: start: 20120524, end: 20121001
  4. CARBOPLATIN. [Suspect]
     Active Substance: CARBOPLATIN
     Indication: OVARIAN CANCER
     Dosage: 660 MG, UNK
     Dates: start: 20120524, end: 20120524
  5. PACLITAXEL. [Suspect]
     Active Substance: PACLITAXEL
     Indication: OVARIAN CANCER
     Dosage: 330 MG, UNK
     Route: 048
     Dates: start: 20120524, end: 20120614
  6. BEVACIZUMAB. [Suspect]
     Active Substance: BEVACIZUMAB
     Indication: OVARIAN CANCER
     Dosage: 1290 MG, UNK
     Dates: start: 20120614
  7. ONDANSETRON [Concomitant]
     Active Substance: ONDANSETRON
     Dosage: BEFORE CHEMO
     Route: 042
     Dates: start: 20120524, end: 20121001
  8. CEFUROXIM [Concomitant]
     Active Substance: CEFUROXIME
     Route: 048
     Dates: start: 20120706, end: 20120708
  9. METOCLOPRAMIDE. [Concomitant]
     Active Substance: METOCLOPRAMIDE
     Route: 048
     Dates: start: 20120524, end: 20121001
  10. RANITIDIN [Concomitant]
     Active Substance: RANITIDINE HYDROCHLORIDE
     Indication: GASTROINTESTINAL DISORDER PROPHYLAXIS
     Route: 048
     Dates: start: 20120524, end: 20121001
  11. MONURIL [Concomitant]
     Active Substance: FOSFOMYCIN TROMETHAMINE
     Indication: URINARY TRACT INFECTION
     Route: 048
     Dates: start: 20120702, end: 201207
  12. COTRIMAZOL [Concomitant]
     Route: 048
     Dates: start: 20120720, end: 20120725
  13. NOVAMINSULFON [Concomitant]
     Active Substance: METAMIZOLE
     Route: 048
     Dates: start: 20120720, end: 201207

REACTIONS (5)
  - Anaemia [Recovered/Resolved]
  - Thrombocytopenia [Recovered/Resolved]
  - Anaemia [Recovered/Resolved]
  - Urinary bladder haemorrhage [Recovered/Resolved]
  - Proteinuria [Not Recovered/Not Resolved]

NARRATIVE: CASE EVENT DATE: 20120705
